FAERS Safety Report 5075442-4 (Version None)
Quarter: 2006Q3

REPORT INFORMATION
  Report Type: 
  Country: None (occurrence: None)
  Receive Date: 20060714
  Receipt Date: 20060316
  Transmission Date: 20061208
  Serious: No
  Sender: FDA-Public Use
  Company Number: 2006SP001255

PATIENT
  Age: 63 Year
  Sex: Male
  Weight: 111.1313 kg

DRUGS (6)
  1. LUNESTA [Suspect]
     Indication: INITIAL INSOMNIA
     Dosage: 2 MG;HS;ORAL
     Route: 048
     Dates: start: 20060314, end: 20060315
  2. FUROSEMIDE [Concomitant]
  3. ZETIA [Concomitant]
  4. INSULIN [Concomitant]
  5. ATORVASTATIN CALCIUM [Concomitant]
  6. AMBIEN [Concomitant]

REACTIONS (2)
  - DRUG INEFFECTIVE [None]
  - INITIAL INSOMNIA [None]
